FAERS Safety Report 9815256 (Version 1)
Quarter: 2014Q1

REPORT INFORMATION
  Report Type: Report from Study
  Country: DE (occurrence: DE)
  Receive Date: 20140114
  Receipt Date: 20140114
  Transmission Date: 20141002
  Serious: Yes (Other)
  Sender: FDA-Public Use
  Company Number: DE-ROCHE-1331975

PATIENT
  Age: 55 Year
  Sex: Female

DRUGS (3)
  1. AVASTIN [Suspect]
     Indication: OVARIAN CANCER
     Route: 042
     Dates: start: 20121108, end: 20121108
  2. CARBOPLATIN [Concomitant]
     Indication: OVARIAN CANCER
     Dosage: STOPPED AFTER SIX CYCLES
     Route: 065
     Dates: start: 20120927, end: 20130111
  3. PACLITAXEL [Concomitant]
     Indication: OVARIAN CANCER
     Dosage: STOPPED AFTER SIX CYCLES
     Route: 065
     Dates: start: 20120927, end: 20130111

REACTIONS (1)
  - Drug therapeutic incompatibility [Unknown]
